FAERS Safety Report 5000222-5 (Version None)
Quarter: 2006Q2

REPORT INFORMATION
  Report Type: 
  Country: None (occurrence: None)
  Receive Date: 20060509
  Receipt Date: 20060426
  Transmission Date: 20061013
  Serious: Yes (Other)
  Sender: FDA-Public Use
  Company Number: 2006057002

PATIENT
  Age: 85 Year
  Sex: Female

DRUGS (4)
  1. PREDNISOLONE [Suspect]
     Indication: ILL-DEFINED DISORDER
     Dosage: OPHTHALMIC
     Route: 047
     Dates: start: 20060204
  2. DIAZEPAM [Concomitant]
  3. LEVOTHYROXINE SODIUM [Concomitant]
  4. NYSTATIN [Concomitant]

REACTIONS (4)
  - EYE PRURITUS [None]
  - EYE SWELLING [None]
  - LACRIMATION INCREASED [None]
  - OCULAR HYPERAEMIA [None]
